FAERS Safety Report 7681157-6 (Version None)
Quarter: 2011Q3

REPORT INFORMATION
  Report Type: 
  Country: None (occurrence: None)
  Receive Date: 20110812
  Receipt Date: 20110804
  Transmission Date: 20111222
  Serious: Yes (Hospitalization)
  Sender: FDA-Public Use
  Company Number: BE-ABBOTT-11P-013-0728675-00

PATIENT
  Sex: Female
  Weight: 82 kg

DRUGS (17)
  1. METHOTREXATE [Concomitant]
  2. DIAZEPAM [Concomitant]
     Indication: ANXIETY
     Dates: start: 20100101
  3. REDOMEX [Concomitant]
     Indication: NEURALGIA
     Dates: start: 20090101, end: 20110501
  4. TRAMADOL HCL [Concomitant]
     Indication: NEURALGIA
     Dates: start: 20090507
  5. FOLIC ACID [Concomitant]
     Indication: DRUG THERAPY
  6. OMEPRAZOLE [Concomitant]
     Indication: CROHN'S DISEASE
     Dates: start: 20090101, end: 20110522
  7. HUMIRA [Suspect]
     Dosage: WEEK 2
     Route: 058
  8. DULOXETINE HYDROCHLORIDE [Concomitant]
     Indication: DEPRESSION
     Dates: start: 20100101
  9. HUMIRA [Suspect]
     Indication: CROHN'S DISEASE
     Dosage: BASELINE
     Route: 058
     Dates: start: 20080916, end: 20080916
  10. FOLIC ACID [Concomitant]
     Indication: VITAMIN SUPPLEMENTATION
     Dates: start: 20100909, end: 20110626
  11. METHOTREXATE [Concomitant]
     Indication: CROHN'S DISEASE
     Dates: start: 20050725, end: 20090317
  12. METHOTREXATE [Concomitant]
     Dates: start: 20090318, end: 20100101
  13. CYANOCOBALAMIN [Concomitant]
     Indication: VITAMIN B12 DEFICIENCY
     Dates: start: 20110101, end: 20110620
  14. HUMIRA [Suspect]
     Route: 058
     Dates: end: 20110311
  15. EPSIPAM [Concomitant]
     Indication: FIBROMYALGIA
     Dates: start: 20080606
  16. SIPRALEXA [Concomitant]
     Indication: FIBROMYALGIA
     Dates: start: 20080101, end: 20110626
  17. ZOLPIDEM [Concomitant]
     Indication: INSOMNIA
     Dates: end: 20110519

REACTIONS (4)
  - EMBOLISM [None]
  - CORONARY ARTERY EMBOLISM [None]
  - ARTERIAL THROMBOSIS [None]
  - PULMONARY EMBOLISM [None]
